FAERS Safety Report 23558192 (Version 2)
Quarter: 2024Q4

REPORT INFORMATION
  Report Type: Spontaneous
  Country: CA (occurrence: CA)
  Receive Date: 20240223
  Receipt Date: 20241021
  Transmission Date: 20250115
  Serious: Yes (Other)
  Sender: ABBVIE
  Company Number: None

PATIENT
  Age: 55 Year
  Sex: Female

DRUGS (4)
  1. CITALOPRAM [Suspect]
     Active Substance: CITALOPRAM
     Indication: Anxiety
     Dosage: DAILY DOSE 20 MILLIGRAM
     Route: 065
  2. AZATHIOPRINE [Concomitant]
     Active Substance: AZATHIOPRINE
     Indication: Systemic lupus erythematosus
     Route: 065
  3. ALPRAZOLAM [Suspect]
     Active Substance: ALPRAZOLAM
     Indication: Panic attack
     Route: 065
  4. PREDNISONE [Concomitant]
     Active Substance: PREDNISONE
     Indication: Systemic lupus erythematosus
     Route: 065

REACTIONS (2)
  - Cognitive disorder [Recovering/Resolving]
  - Treatment noncompliance [Recovering/Resolving]
